FAERS Safety Report 14538500 (Version 1)
Quarter: 2018Q1

REPORT INFORMATION
  Report Type: Spontaneous
  Country: US (occurrence: US)
  Receive Date: 20180216
  Receipt Date: 20180216
  Transmission Date: 20180509
  Serious: No
  Sender: FDA-Public Use
  Company Number: US-ASTRAZENECA-2018SE16442

PATIENT
  Sex: Female

DRUGS (1)
  1. OMNARIS [Suspect]
     Active Substance: CICLESONIDE
     Route: 045

REACTIONS (10)
  - Vomiting [Unknown]
  - Urinary tract infection [Unknown]
  - Back pain [Unknown]
  - Ear infection [Unknown]
  - Circumstance or information capable of leading to medication error [Unknown]
  - Urticaria [Unknown]
  - Burning sensation [Unknown]
  - Epistaxis [Unknown]
  - Drug hypersensitivity [Unknown]
  - Insomnia [Unknown]
